FAERS Safety Report 24951050 (Version 2)
Quarter: 2025Q3

REPORT INFORMATION
  Report Type: Spontaneous
  Country: US (occurrence: US)
  Receive Date: 20250210
  Receipt Date: 20250826
  Transmission Date: 20251021
  Serious: No
  Sender: SANOFI AVENTIS
  Company Number: US-SANOFI-02381014

PATIENT
  Age: 73 Year
  Sex: Female

DRUGS (6)
  1. DUPIXENT [Suspect]
     Active Substance: DUPILUMAB
     Indication: Chronic obstructive pulmonary disease
     Dosage: 200 MG, QOW
     Route: 058
     Dates: start: 20241011
  2. DUPIXENT [Suspect]
     Active Substance: DUPILUMAB
     Indication: Asthma
  3. HERBALS\TURMERIC [Concomitant]
     Active Substance: HERBALS\TURMERIC
  4. UNSPECIFIED INGREDIENT [Concomitant]
     Active Substance: UNSPECIFIED INGREDIENT
  5. VITAMIN D [Concomitant]
     Active Substance: VITAMIN D NOS
  6. ALBUTEROL [Concomitant]
     Active Substance: ALBUTEROL

REACTIONS (3)
  - Exposure via skin contact [Unknown]
  - Accidental exposure to product [Unknown]
  - Product dose omission in error [Unknown]

NARRATIVE: CASE EVENT DATE: 20250101
